FAERS Safety Report 12654582 (Version 2)
Quarter: 2016Q4

REPORT INFORMATION
  Report Type: Report from Study
  Country: DE (occurrence: DE)
  Receive Date: 20160816
  Receipt Date: 20161128
  Transmission Date: 20170207
  Serious: No
  Sender: FDA-Public Use
  Company Number: DE-ROCHE-1813822

PATIENT
  Age: 32 Year
  Sex: Female

DRUGS (1)
  1. RITUXIMAB [Suspect]
     Active Substance: RITUXIMAB
     Indication: RHEUMATOID ARTHRITIS
     Dosage: ON 01/APR/2016, RECEIVED RITUXIMAB PRIOR TO SAE
     Route: 042

REACTIONS (2)
  - Melanocytic naevus [Recovered/Resolved]
  - Labia enlarged [Recovered/Resolved]

NARRATIVE: CASE EVENT DATE: 20160620
